FAERS Safety Report 10649475 (Version 1)
Quarter: 2014Q4

REPORT INFORMATION
  Report Type: Spontaneous
  Country: US (occurrence: US)
  Receive Date: 20141212
  Receipt Date: 20141212
  Transmission Date: 20150529
  Serious: Yes (Hospitalization, Other)
  Sender: FDA-Public Use
  Company Number: US-FRI-1000072946

PATIENT
  Age: 64 Year
  Sex: Male
  Weight: 93.8 kg

DRUGS (1)
  1. BYSTOLIC [Suspect]
     Active Substance: NEBIVOLOL HYDROCHLORIDE
     Indication: HYPERTENSION
     Dosage: 25 MG
     Route: 048
     Dates: end: 20141023

REACTIONS (2)
  - Acute kidney injury [Unknown]
  - Metastases to adrenals [Unknown]

NARRATIVE: CASE EVENT DATE: 20141023
